FAERS Safety Report 6013693-2 (Version None)
Quarter: 2008Q4

REPORT INFORMATION
  Report Type: 
  Country: None (occurrence: None)
  Receive Date: 20081219
  Receipt Date: 20081217
  Transmission Date: 20090506
  Serious: Yes (Other)
  Sender: FDA-Public Use
  Company Number: A0743094A

PATIENT
  Age: 39 Year
  Sex: Male
  Weight: 148.6 kg

DRUGS (10)
  1. LOVAZA [Suspect]
     Dosage: 4G PER DAY
     Route: 048
     Dates: start: 20080805, end: 20080807
  2. SYMLIN [Suspect]
     Indication: HYPERTENSION
     Dosage: 129MCG TWICE PER DAY
     Route: 058
     Dates: start: 20080804, end: 20080808
  3. LANTUS [Concomitant]
     Dosage: 180UNIT AT NIGHT
     Route: 058
     Dates: start: 20031204
  4. NOVOLOG [Concomitant]
     Dosage: 65UNIT THREE TIMES PER DAY
     Route: 058
     Dates: start: 20080620
  5. REGLAN [Concomitant]
     Indication: GASTROINTESTINAL DISORDER
     Dosage: 5MG TWICE PER DAY
     Route: 048
  6. PRILOSEC [Concomitant]
     Indication: GASTROINTESTINAL DISORDER
     Dosage: 20MG PER DAY
     Route: 048
  7. BENICAR [Concomitant]
     Indication: HYPERTENSION
     Dosage: 40MG PER DAY
     Route: 048
     Dates: start: 20030904, end: 20080808
  8. UNSPECIFIED MEDICATION [Concomitant]
     Dosage: 1TAB PER DAY
     Route: 048
     Dates: start: 20080418, end: 20080808
  9. TRICOR [Concomitant]
     Dosage: 145MG PER DAY
     Route: 048
     Dates: start: 20050311, end: 20080808
  10. HUMALOG [Concomitant]
     Dosage: 40UNIT TWICE PER DAY
     Route: 058
     Dates: start: 20031204, end: 20080620

REACTIONS (8)
  - ASTHENIA [None]
  - BLOOD GLUCOSE INCREASED [None]
  - CIRCULATORY COLLAPSE [None]
  - DIZZINESS [None]
  - NAUSEA [None]
  - PRODUCT QUALITY ISSUE [None]
  - PRURITUS [None]
  - URTICARIA [None]
